FAERS Safety Report 24965905 (Version 1)
Quarter: 2025Q1

REPORT INFORMATION
  Report Type: Spontaneous
  Country: US (occurrence: None)
  Receive Date: 20250212
  Receipt Date: 20250212
  Transmission Date: 20250408
  Serious: No
  Sender: FDA-CTU
  Company Number: None

PATIENT
  Age: 96 Year
  Sex: Male
  Weight: 70 kg

DRUGS (1)
  1. IRON SUCROSE [Suspect]
     Active Substance: IRON SUCROSE
     Indication: Iron deficiency anaemia
     Route: 042
     Dates: start: 20241216, end: 20241221

REACTIONS (2)
  - Infusion site pain [None]
  - Infusion site extravasation [None]

NARRATIVE: CASE EVENT DATE: 20241216
